FAERS Safety Report 10196996 (Version 1)
Quarter: 2014Q2

REPORT INFORMATION
  Report Type: Spontaneous
  Country: FI (occurrence: FI)
  Receive Date: 20140527
  Receipt Date: 20140527
  Transmission Date: 20141212
  Serious: Yes (Life-Threatening, Hospitalization)
  Sender: FDA-Public Use
  Company Number: FI-B.I. PHARMACEUTICALS,INC./RIDGEFIELD-2014-BI-22720SF

PATIENT
  Age: 85 Year
  Sex: Female

DRUGS (4)
  1. PRADAXA [Suspect]
     Indication: CEREBRAL INFARCTION
     Dosage: 220 MG
     Route: 048
     Dates: start: 20131227, end: 20140509
  2. PRADAXA [Suspect]
     Indication: ATRIAL FIBRILLATION
  3. CARDACE [Concomitant]
     Indication: HYPERTENSION
     Dosage: 10 MG
     Route: 048
  4. BISOPROLOL ORION [Concomitant]
     Indication: HYPERTENSION
     Route: 065

REACTIONS (8)
  - Malaise [Not Recovered/Not Resolved]
  - Melaena [Not Recovered/Not Resolved]
  - Renal failure acute [Not Recovered/Not Resolved]
  - International normalised ratio increased [Recovered/Resolved]
  - Activated partial thromboplastin time prolonged [Recovered/Resolved]
  - Thrombin time prolonged [Not Recovered/Not Resolved]
  - Investigation abnormal [Not Recovered/Not Resolved]
  - Coagulopathy [Not Recovered/Not Resolved]
